FAERS Safety Report 7042026-8 (Version None)
Quarter: 2010Q4

REPORT INFORMATION
  Report Type: 
  Country: None (occurrence: None)
  Receive Date: 20101013
  Receipt Date: 20091027
  Transmission Date: 20110411
  Serious: No
  Sender: FDA-Public Use
  Company Number: US-ASTRAZENECA-2009SE22988

PATIENT
  Age: 865 Month
  Sex: Male
  Weight: 68.5 kg

DRUGS (3)
  1. SYMBICORT [Suspect]
     Indication: ASTHMA
     Dosage: 160/4,5 UG 2 PUFFS
     Route: 055
     Dates: start: 20091024
  2. QVAR 40 [Concomitant]
  3. ADVAIR DISKUS 100/50 [Concomitant]

REACTIONS (1)
  - LARYNGITIS [None]
